FAERS Safety Report 8157390 (Version 7)
Quarter: 2013Q2

REPORT INFORMATION
  Report Type: Spontaneous
  Country: US (occurrence: US)
  Receive Date: 20110927
  Receipt Date: 20130506
  Transmission Date: 20140414
  Serious: No
  Sender: FDA-Public Use
  Company Number: US-ASTRAZENECA-2010SE61311

PATIENT
  Age: 41 Year
  Sex: Female

DRUGS (38)
  1. SEROQUEL [Suspect]
     Indication: MIGRAINE PROPHYLAXIS
     Dosage: ADDITIONAL 150 MG
     Route: 048
  2. SEROQUEL [Suspect]
     Indication: HEADACHE
     Dosage: ADDITIONAL 150 MG
     Route: 048
  3. SEROQUEL [Suspect]
     Indication: BENIGN INTRACRANIAL HYPERTENSION
     Dosage: ADDITIONAL 150 MG
     Route: 048
  4. SEROQUEL [Suspect]
     Indication: MIGRAINE PROPHYLAXIS
     Route: 048
  5. SEROQUEL [Suspect]
     Indication: HEADACHE
     Route: 048
  6. SEROQUEL [Suspect]
     Indication: BENIGN INTRACRANIAL HYPERTENSION
     Route: 048
  7. SEROQUEL [Suspect]
     Indication: MIGRAINE PROPHYLAXIS
     Route: 048
  8. SEROQUEL [Suspect]
     Indication: HEADACHE
     Route: 048
  9. SEROQUEL [Suspect]
     Indication: BENIGN INTRACRANIAL HYPERTENSION
     Route: 048
  10. SEROQUEL [Suspect]
     Indication: MIGRAINE PROPHYLAXIS
     Dosage: 300 MG TAKEN IN THE MORNING AND 250 MG TAKEN IN THE EVENING
     Route: 048
  11. SEROQUEL [Suspect]
     Indication: HEADACHE
     Dosage: 300 MG TAKEN IN THE MORNING AND 250 MG TAKEN IN THE EVENING
     Route: 048
  12. SEROQUEL [Suspect]
     Indication: BENIGN INTRACRANIAL HYPERTENSION
     Dosage: 300 MG TAKEN IN THE MORNING AND 250 MG TAKEN IN THE EVENING
     Route: 048
  13. SEROQUEL [Suspect]
     Indication: MIGRAINE PROPHYLAXIS
     Dosage: 150MG AT BEDTIME AS NEEDED.
     Route: 048
  14. SEROQUEL [Suspect]
     Indication: HEADACHE
     Dosage: 150MG AT BEDTIME AS NEEDED.
     Route: 048
  15. SEROQUEL [Suspect]
     Indication: BENIGN INTRACRANIAL HYPERTENSION
     Dosage: 150MG AT BEDTIME AS NEEDED.
     Route: 048
  16. SEROQUEL [Suspect]
     Indication: MIGRAINE PROPHYLAXIS
     Route: 048
  17. SEROQUEL [Suspect]
     Indication: HEADACHE
     Route: 048
  18. SEROQUEL [Suspect]
     Indication: BENIGN INTRACRANIAL HYPERTENSION
     Route: 048
  19. SEROQUEL [Suspect]
     Indication: MIGRAINE PROPHYLAXIS
     Route: 048
  20. SEROQUEL [Suspect]
     Indication: HEADACHE
     Route: 048
  21. SEROQUEL [Suspect]
     Indication: BENIGN INTRACRANIAL HYPERTENSION
     Route: 048
  22. SEROQUEL [Suspect]
     Indication: MIGRAINE PROPHYLAXIS
     Route: 048
  23. SEROQUEL [Suspect]
     Indication: HEADACHE
     Route: 048
  24. SEROQUEL [Suspect]
     Indication: BENIGN INTRACRANIAL HYPERTENSION
     Route: 048
  25. SEROQUEL [Suspect]
     Indication: MIGRAINE PROPHYLAXIS
     Route: 048
     Dates: start: 20110420
  26. SEROQUEL [Suspect]
     Indication: HEADACHE
     Route: 048
     Dates: start: 20110420
  27. SEROQUEL [Suspect]
     Indication: BENIGN INTRACRANIAL HYPERTENSION
     Route: 048
     Dates: start: 20110420
  28. SEROQUEL [Suspect]
     Indication: MIGRAINE PROPHYLAXIS
     Route: 048
     Dates: start: 20110420
  29. SEROQUEL [Suspect]
     Indication: HEADACHE
     Route: 048
     Dates: start: 20110420
  30. SEROQUEL [Suspect]
     Indication: BENIGN INTRACRANIAL HYPERTENSION
     Route: 048
     Dates: start: 20110420
  31. DIAMOX [Concomitant]
     Indication: DIURETIC THERAPY
  32. KLONOPIN [Concomitant]
  33. CLARIL [Concomitant]
  34. TRAZODONE [Concomitant]
  35. ZANAFLEX [Concomitant]
     Indication: SPINAL DISORDER
  36. PROZAC [Concomitant]
  37. TRAMADOL [Concomitant]
     Indication: PAIN
  38. VALIUM [Concomitant]
     Indication: ANXIETY

REACTIONS (8)
  - Drug dose omission [Unknown]
  - Off label use [Unknown]
  - Anxiety [Unknown]
  - Nervous system disorder [Unknown]
  - Headache [Unknown]
  - Migraine [Unknown]
  - Insomnia [Unknown]
  - Brain oedema [Unknown]
